FAERS Safety Report 14634708 (Version 9)
Quarter: 2020Q1

REPORT INFORMATION
  Report Type: Spontaneous
  Country: US (occurrence: US)
  Receive Date: 20180314
  Receipt Date: 20200122
  Transmission Date: 20200409
  Serious: No
  Sender: FDA-Public Use
  Company Number: US-PFIZER INC-2018103310

PATIENT
  Age: 59 Year
  Sex: Female
  Weight: 72 kg

DRUGS (5)
  1. IBRANCE [Suspect]
     Active Substance: PALBOCICLIB
     Indication: BREAST CANCER FEMALE
     Dosage: 75 MG, CYCLIC (QS X 21 DAYS)
     Route: 048
     Dates: start: 20171220
  2. IBRANCE [Suspect]
     Active Substance: PALBOCICLIB
     Dosage: 75 MG, CYCLIC [1 WEEK ON THEN; 1 WEEK OFF Q28 DAY]
     Route: 048
     Dates: start: 201802
  3. IBRANCE [Suspect]
     Active Substance: PALBOCICLIB
     Dosage: 75 MG, CYCLIC (EVERY OTHER DAY, X 21 DAYS)
     Route: 048
     Dates: start: 201802, end: 201802
  4. IBRANCE [Suspect]
     Active Substance: PALBOCICLIB
     Dosage: 75 MG, CYCLIC (ONE WEEK ON AND ONE WEEK OFF)
     Route: 048
     Dates: start: 201812
  5. IBRANCE [Suspect]
     Active Substance: PALBOCICLIB
     Dosage: 75 MG, CYCLIC (DAILY, D1-D21Q28D)
     Route: 048
     Dates: start: 20180216, end: 201802

REACTIONS (6)
  - White blood cell count decreased [Unknown]
  - Blood bilirubin increased [Unknown]
  - Sinusitis [Unknown]
  - Blood count abnormal [Unknown]
  - Hepatic enzyme abnormal [Unknown]
  - Ocular icterus [Unknown]

NARRATIVE: CASE EVENT DATE: 2018
